FAERS Safety Report 8793314 (Version 1)
Quarter: 2012Q4

REPORT INFORMATION
  Report Type: Report from Study
  Country: HU (occurrence: HU)
  Receive Date: 20120918
  Receipt Date: 20120918
  Transmission Date: 20130627
  Serious: Yes (Death, Hospitalization)
  Sender: FDA-Public Use
  Company Number: HU-ROCHE-1126164

PATIENT
  Sex: Male

DRUGS (2)
  1. XELODA [Suspect]
     Indication: COLORECTAL CANCER
     Dosage: Dose: 2x5
     Route: 048
     Dates: start: 20090507, end: 200907
  2. XELODA [Suspect]
     Indication: METASTASES TO LIVER

REACTIONS (3)
  - Death [Fatal]
  - Headache [Unknown]
  - Jaundice [Unknown]
